FAERS Safety Report 7562796-X (Version None)
Quarter: 2011Q2

REPORT INFORMATION
  Report Type: 
  Country: None (occurrence: None)
  Receive Date: 20110622
  Receipt Date: 20110620
  Transmission Date: 20111010
  Serious: No
  Sender: FDA-Public Use
  Company Number: US-ROXANE LABORATORIES, INC.-2011-RO-00878RO

PATIENT
  Sex: Female
  Weight: 50 kg

DRUGS (6)
  1. VITAMIN TAB [Concomitant]
  2. DEXILANT [Suspect]
     Indication: DYSPEPSIA
  3. ATENOLOL [Concomitant]
  4. DEXILANT [Suspect]
     Indication: HIATUS HERNIA
     Dosage: 120 MG
     Route: 048
     Dates: start: 20110516, end: 20110523
  5. CALCIUM CARBONATE [Concomitant]
  6. PREDNISONE [Suspect]
     Indication: EXPOSURE TO TOXIC AGENT
     Dosage: 20 MG
     Dates: start: 20110516, end: 20110523

REACTIONS (7)
  - EAR DISCOMFORT [None]
  - HEART RATE IRREGULAR [None]
  - PALPITATIONS [None]
  - BLOOD PRESSURE INCREASED [None]
  - TREMOR [None]
  - BLOOD GLUCOSE INCREASED [None]
  - CHEST DISCOMFORT [None]
